FAERS Safety Report 10256592 (Version 1)
Quarter: 2014Q2

REPORT INFORMATION
  Report Type: Spontaneous
  Country: US (occurrence: US)
  Receive Date: 20140624
  Receipt Date: 20140624
  Transmission Date: 20141212
  Serious: No
  Sender: FDA-Public Use
  Company Number: US-ASTRAZENECA-2014SE41138

PATIENT
  Age: 68 Year
  Sex: Female
  Weight: 113.4 kg

DRUGS (4)
  1. CRESTOR [Suspect]
     Indication: BLOOD CHOLESTEROL ABNORMAL
     Route: 048
     Dates: start: 2013
  2. CRESTOR [Suspect]
     Indication: BLOOD CHOLESTEROL ABNORMAL
     Dosage: 40 MG, MONDAY, WEDNESDAY AND FRIDAY
     Route: 048
  3. CRESTOR [Suspect]
     Indication: BLOOD CHOLESTEROL ABNORMAL
     Dosage: 20 MG, MONDAY, WEDNESDAY AND FRIDAY
     Route: 048
     Dates: start: 20140611
  4. GLUMEXA- METFORMIN [Concomitant]
     Indication: GLUCOSE TOLERANCE IMPAIRED

REACTIONS (7)
  - Arthralgia [Unknown]
  - Myalgia [Unknown]
  - Balance disorder [Unknown]
  - Adverse event [Unknown]
  - Gait disturbance [Unknown]
  - Musculoskeletal stiffness [Unknown]
  - Off label use [Unknown]
